FAERS Safety Report 8669950 (Version 5)
Quarter: 2013Q3

REPORT INFORMATION
  Report Type: Report from Study
  Country: JP (occurrence: JP)
  Receive Date: 20120718
  Receipt Date: 20130708
  Transmission Date: 20140515
  Serious: Yes (Hospitalization, Other)
  Sender: FDA-Public Use
  Company Number: JP-MSD-2012SP025232

PATIENT
  Age: 66 Year
  Sex: Male
  Weight: 54 kg

DRUGS (20)
  1. PEGINTRON [Suspect]
     Indication: CHRONIC HEPATITIS C
     Dosage: 1.80 MICROGRAM PER KILOGRAM, QW
     Route: 058
     Dates: start: 20120306, end: 20120513
  2. PEGINTRON [Suspect]
     Dosage: 1.40 MICROGRAM PER KILOGRAM, QW
     Route: 058
     Dates: start: 20120514, end: 20120814
  3. REBETOL [Suspect]
     Indication: CHRONIC HEPATITIS C
     Dosage: 600 MG, QD
     Route: 048
     Dates: start: 20120306, end: 20120318
  4. REBETOL [Suspect]
     Dosage: 400 MG, QD
     Route: 048
     Dates: start: 20120319, end: 20120430
  5. REBETOL [Suspect]
     Dosage: 200 MG, QD
     Route: 048
     Dates: start: 20120501, end: 20120528
  6. REBETOL [Suspect]
     Dosage: 400 MG, QD
     Route: 048
     Dates: start: 20120529, end: 20120821
  7. TELAVIC [Suspect]
     Indication: CHRONIC HEPATITIS C
     Dosage: 2250 MG, QD
     Route: 048
     Dates: start: 20120306, end: 20120423
  8. TELAVIC [Suspect]
     Dosage: 1500 MG, QD
     Route: 048
     Dates: start: 20120424, end: 20120507
  9. TELAVIC [Suspect]
     Dosage: 1000 MG, QD
     Route: 048
     Dates: start: 20120508, end: 20120528
  10. UBIRON [Concomitant]
     Indication: CHRONIC HEPATITIS C
     Dosage: FORMULATION: POR 200 MG, QD
     Route: 048
  11. MAINHEART [Concomitant]
     Indication: HYPERTENSION
     Dosage: FORMULATION: POR 2.50 MG, QD
     Route: 048
     Dates: end: 20120323
  12. EPADEL S [Concomitant]
     Indication: PROPHYLAXIS
     Dosage: 1200 MG , QD
     Route: 048
     Dates: start: 20120306, end: 20120820
  13. PROMAC (POLAPREZINC) [Concomitant]
     Indication: PROPHYLAXIS
     Dosage: FORMULATION: POR 150 MG, QD, CUMULATIVE DOSE: 750 MG
     Route: 048
     Dates: start: 20120306, end: 20120820
  14. ELIETEN [Concomitant]
     Indication: PROPHYLAXIS
     Dosage: 10 MG, QD, POR
     Route: 048
     Dates: start: 20120313, end: 20120820
  15. NU-LOTAN [Concomitant]
     Indication: HYPERTENSION
     Dosage: FORMULATION: POR 50 MG, QD
     Route: 048
     Dates: start: 20120427
  16. FEROTYM [Concomitant]
     Indication: PROPHYLAXIS
     Dosage: 100 MG, QD, POR
     Route: 048
     Dates: end: 20120617
  17. FEROTYM [Concomitant]
     Dosage: 50 MG, QD, POR
     Route: 048
     Dates: start: 20120618, end: 20120703
  18. REBAMIPIDE [Concomitant]
     Indication: PROPHYLAXIS
     Dosage: FORMULATION: POR 200 MG, QD
     Route: 048
  19. LENDEM D [Concomitant]
     Indication: PROPHYLAXIS
     Dosage: 0.25 MG, QD, POR
     Route: 048
     Dates: start: 20120307, end: 20120820
  20. GASTROINTESTINAL PREPARATIONS (UNSPECIFIED) [Concomitant]
     Indication: PROPHYLAXIS
     Dosage: 300 MG, QD, POR
     Route: 048
     Dates: start: 20120306

REACTIONS (3)
  - Renal impairment [Recovered/Resolved]
  - Haemoglobin decreased [Recovered/Resolved]
  - Haemoglobin decreased [Not Recovered/Not Resolved]
